FAERS Safety Report 14393857 (Version 3)
Quarter: 2018Q3

REPORT INFORMATION
  Report Type: Spontaneous
  Country: US (occurrence: US)
  Receive Date: 20180116
  Receipt Date: 20180917
  Transmission Date: 20181010
  Serious: Yes (Hospitalization)
  Sender: FDA-Public Use
  Company Number: US-DSJP-DSU-2017-139467

PATIENT

DRUGS (3)
  1. BENICAR [Suspect]
     Active Substance: OLMESARTAN MEDOXOMIL
     Dosage: 20 MG, 2 TABLET, QD
     Route: 048
     Dates: start: 20140410
  2. BENICAR [Suspect]
     Active Substance: OLMESARTAN MEDOXOMIL
     Dosage: 20 MG HALF TABLET , UNK
  3. BENICAR [Suspect]
     Active Substance: OLMESARTAN MEDOXOMIL
     Indication: ESSENTIAL HYPERTENSION
     Dosage: 20 MG, QD
     Route: 048
     Dates: start: 200501, end: 20170822

REACTIONS (5)
  - Diverticulum [Recovering/Resolving]
  - Sprue-like enteropathy [Recovering/Resolving]
  - Dyspepsia [Unknown]
  - Drug administration error [Unknown]
  - Constipation [Unknown]

NARRATIVE: CASE EVENT DATE: 20150205
